FAERS Safety Report 10043917 (Version 1)
Quarter: 2014Q1

REPORT INFORMATION
  Report Type: Spontaneous
  Country: US (occurrence: US)
  Receive Date: 20140328
  Receipt Date: 20140328
  Transmission Date: 20141002
  Serious: No
  Sender: FDA-Public Use
  Company Number: US-MYLANLABS-2013S1004216

PATIENT
  Age: 54 Year
  Sex: Male
  Weight: 83.92 kg

DRUGS (3)
  1. EMSAM (SELEGILINE TRANSDERMAL SYSTEM) [Suspect]
     Indication: DEPRESSION
     Dosage: CHANGED Q24H
     Route: 062
     Dates: start: 201212
  2. PROPRANOLOL [Concomitant]
     Indication: BLOOD PRESSURE INCREASED
     Route: 048
  3. LUNESTA [Concomitant]
     Indication: INSOMNIA
     Route: 048

REACTIONS (1)
  - Tinnitus [Not Recovered/Not Resolved]
